FAERS Safety Report 8236250-6 (Version None)
Quarter: 2012Q1

REPORT INFORMATION
  Report Type: 
  Country: None (occurrence: None)
  Receive Date: 20120327
  Receipt Date: 20120317
  Transmission Date: 20120608
  Serious: Yes (Other)
  Sender: FDA-Public Use
  Company Number: US-PAR PHARMACEUTICAL, INC-2012SCPR004288

PATIENT

DRUGS (1)
  1. BUPROPION HCL [Suspect]
     Indication: DEPRESSION
     Dosage: 100 MG, TID
     Route: 065

REACTIONS (2)
  - ANGLE CLOSURE GLAUCOMA [None]
  - CHOROIDAL EFFUSION [None]
